FAERS Safety Report 9842589 (Version 2)
Quarter: 2014Q1

REPORT INFORMATION
  Report Type: Spontaneous
  Country: US (occurrence: US)
  Receive Date: 20140124
  Receipt Date: 20140124
  Transmission Date: 20141002
  Serious: No
  Sender: FDA-Public Use
  Company Number: US-GILEAD-2012-0049570

PATIENT
  Age: 53 Year
  Sex: Female

DRUGS (2)
  1. RANEXA [Suspect]
     Indication: ANGINA PECTORIS
  2. SOTALOL [Concomitant]

REACTIONS (3)
  - Arrhythmia [Unknown]
  - Drug interaction [Recovered/Resolved]
  - Electrocardiogram QT prolonged [Recovered/Resolved]
